FAERS Safety Report 6840045-5 (Version None)
Quarter: 2010Q3

REPORT INFORMATION
  Report Type: 
  Country: None (occurrence: None)
  Receive Date: 20100714
  Receipt Date: 20100708
  Transmission Date: 20110219
  Serious: Yes (Hospitalization)
  Sender: FDA-Public Use
  Company Number: BR-ROCHE-710355

PATIENT
  Sex: Female
  Weight: 72 kg

DRUGS (11)
  1. TRASTUZUMAB [Suspect]
     Indication: BREAST CANCER
     Dosage: LOADING DOSE
     Route: 042
     Dates: start: 20090821
  2. TRASTUZUMAB [Suspect]
     Dosage: LAST DOSE PRIOR TO SAE 11 JUN 2010. MAINTAINENCE DOSE.
     Route: 042
     Dates: start: 20091216
  3. PERTUZUMAB [Suspect]
     Indication: BREAST CANCER
     Dosage: LAST DOSE PRIOR TO SAE: 29 OCTOBER 2009.
     Route: 042
     Dates: start: 20090821
  4. DOCETAXEL [Suspect]
     Indication: BREAST CANCER
     Dosage: BATCH NO: 03 VIALS 20 MG D8CA09, AND 01 VIAL 80 MG D9A117, LAST DOSE PRIOR TO SAE; 17 FEB 2010
     Route: 042
     Dates: start: 20091216
  5. FLUOROURACIL [Suspect]
     Indication: BREAST CANCER
     Dosage: DATE OF LAST DOSE PRIOR TO SAE: 22 APRIL 2010.
     Route: 042
     Dates: start: 20100310
  6. EPIRUBICIN [Suspect]
     Indication: BREAST CANCER
     Dosage: LAST DOSE PRIOR TO SAE: 22 APRIL 2010.
     Route: 042
     Dates: start: 20100310
  7. CYCLOPHOSPHAMIDE [Suspect]
     Indication: BREAST CANCER
     Dosage: LAST DOSE PRIOR TO SAE: 22 APRIL 2010.
     Route: 042
     Dates: start: 20100310
  8. CAPTOPRIL [Concomitant]
     Dates: start: 20060101
  9. HYDROCHLOROTHIAZIDE [Concomitant]
     Dates: start: 20060101
  10. BETAHISTINE [Concomitant]
     Dates: start: 20060101
  11. LIMBITROL [Concomitant]
     Dates: start: 20070101

REACTIONS (1)
  - SKIN NODULE [None]
